FAERS Safety Report 11740060 (Version 4)
Quarter: 2016Q2

REPORT INFORMATION
  Report Type: Spontaneous
  Country: US (occurrence: US)
  Receive Date: 20151113
  Receipt Date: 20160512
  Transmission Date: 20160815
  Serious: Yes (Life-Threatening, Hospitalization, Disabling, Other)
  Sender: FDA-Public Use
  Company Number: ADR-2015-01049

PATIENT
  Age: 27 Year
  Sex: Female

DRUGS (34)
  1. BUPIVACAINE. [Suspect]
     Active Substance: BUPIVACAINE
     Dosage: 0.999 MG/DAY
     Route: 037
     Dates: start: 20150526, end: 20150526
  2. LYRICA [Suspect]
     Active Substance: PREGABALIN
     Dosage: 50 MG TID
  3. LIDOCAINE. [Suspect]
     Active Substance: LIDOCAINE
  4. CONDANSETRON [Suspect]
     Active Substance: ONDANSETRON
  5. ZOFRAN [Suspect]
     Active Substance: ONDANSETRON HYDROCHLORIDE
     Dosage: 4 MG TID, PRN
  6. MORPHINE [Suspect]
     Active Substance: MORPHINE
     Indication: PAIN
     Route: 042
  7. SCOPOLAMINE [Suspect]
     Active Substance: SCOPOLAMINE
     Dosage: 72 HRS/PRN
     Route: 062
  8. FLEXERIL [Suspect]
     Active Substance: CYCLOBENZAPRINE HYDROCHLORIDE
     Dosage: 10 MG
  9. LACTULOSE. [Suspect]
     Active Substance: LACTULOSE
  10. COMPOUNDED BACLOFEN [Suspect]
     Active Substance: BACLOFEN
     Dosage: 0.5 MCG/DAY
     Route: 037
  11. ATIVAN [Suspect]
     Active Substance: LORAZEPAM
     Indication: MUSCLE SPASMS
  12. BENADRYL [Suspect]
     Active Substance: DIPHENHYDRAMINE HYDROCHLORIDE
     Dosage: 25 MG PRN
  13. MORPHINE [Suspect]
     Active Substance: MORPHINE
     Dosage: 0.999 MG/DAY
     Route: 037
  14. FIORICET [Suspect]
     Active Substance: ACETAMINOPHEN\BUTALBITAL\CAFFEINE
  15. VITAMIN D [Suspect]
     Active Substance: CHOLECALCIFEROL
  16. FENTANYL. [Suspect]
     Active Substance: FENTANYL
     Dosage: 2.5 MG/DAY
     Route: 037
     Dates: start: 20150526, end: 20150526
  17. BACLOFEN. [Suspect]
     Active Substance: BACLOFEN
     Dosage: 10 MG
  18. ATIVAN [Suspect]
     Active Substance: LORAZEPAM
     Dosage: 1 MG
  19. TAMOXIFEN [Suspect]
     Active Substance: TAMOXIFEN
     Dosage: 40 MG/DAY
  20. SENOKOT [Suspect]
     Active Substance: SENNOSIDES
  21. SULINDAC. [Suspect]
     Active Substance: SULINDAC
     Dosage: 200 MG/DAY
  22. VITAMIN C [Suspect]
     Active Substance: ASCORBIC ACID
  23. COLACE [Suspect]
     Active Substance: DOCUSATE SODIUM
     Dosage: 100 MG BID
  24. COMPOUNDED BACLOFEN [Suspect]
     Active Substance: BACLOFEN
     Dosage: 499.6 MCG/DAY
     Route: 037
  25. ZOVIRAX [Suspect]
     Active Substance: ACYCLOVIR
  26. OMEPRAZOLE. [Suspect]
     Active Substance: OMEPRAZOLE
     Dosage: 20 MG/DAY
  27. MEDICAL MARIJUANA [Suspect]
     Active Substance: CANNABIS SATIVA SUBSP. INDICA TOP
  28. MULTIVITIMINS [Suspect]
     Active Substance: VITAMINS
  29. KEFLEX [Suspect]
     Active Substance: CEPHALEXIN
     Dosage: 500 MG TID
  30. BUPIVACAINE. [Suspect]
     Active Substance: BUPIVACAINE
     Dosage: 3.997 MG/DAY
  31. IMITREX [Suspect]
     Active Substance: SUMATRIPTAN SUCCINATE
     Dosage: 100 MG PRN
  32. PROAIR HFA [Suspect]
     Active Substance: ALBUTEROL SULFATE
     Dosage: PRN
  33. CALCIUM [Suspect]
     Active Substance: CALCIUM
  34. CLONIDINE. [Suspect]
     Active Substance: CLONIDINE
     Dosage: 0.1 MG BID

REACTIONS (69)
  - Chest discomfort [Unknown]
  - Fall [Unknown]
  - Tachycardia [Unknown]
  - Abnormal behaviour [Unknown]
  - Blood creatinine decreased [Unknown]
  - Chest pain [Unknown]
  - Hypoaesthesia [Unknown]
  - Asthenia [Unknown]
  - Anxiety [Unknown]
  - Joint range of motion decreased [Unknown]
  - Performance status decreased [Unknown]
  - Haemoglobin decreased [Unknown]
  - Drug administration error [Unknown]
  - Coordination abnormal [Unknown]
  - Heart rate increased [Unknown]
  - Nausea [Unknown]
  - Femoral nerve injury [Unknown]
  - Gastrointestinal disorder [Unknown]
  - Malaise [Unknown]
  - Disturbance in attention [Unknown]
  - Dyspnoea [Unknown]
  - Abdominal pain upper [Unknown]
  - Weight decreased [Unknown]
  - Constipation [Unknown]
  - Abdominal pain [Unknown]
  - Incision site pain [Unknown]
  - Palpitations [Unknown]
  - Blood pressure decreased [Unknown]
  - Somnolence [Unknown]
  - Arthralgia [Unknown]
  - Back pain [Unknown]
  - Gait disturbance [Unknown]
  - Balance disorder [Unknown]
  - Arrhythmia [Unknown]
  - Muscular weakness [Unknown]
  - Respiratory distress [Recovered/Resolved]
  - Unresponsive to stimuli [Recovered/Resolved]
  - Mean cell volume decreased [Unknown]
  - No therapeutic response [Unknown]
  - Hypoventilation [Unknown]
  - Cognitive disorder [Unknown]
  - Pain in extremity [Unknown]
  - Cardiac arrest [Unknown]
  - Blood glucose decreased [Unknown]
  - Emotional distress [Unknown]
  - Red cell distribution width increased [Unknown]
  - Fatigue [Unknown]
  - Hypotension [Unknown]
  - Respiratory failure [Unknown]
  - Mobility decreased [Unknown]
  - Overdose [Unknown]
  - Nervous system disorder [Unknown]
  - Night sweats [Unknown]
  - Faecaloma [Unknown]
  - Wound infection [Unknown]
  - Deformity [Unknown]
  - Pain [Unknown]
  - Monoplegia [Unknown]
  - Scar [Unknown]
  - Decreased appetite [Unknown]
  - Neutrophil count increased [Unknown]
  - Platelet count increased [Unknown]
  - Irritability [Unknown]
  - Myalgia [Unknown]
  - Loss of consciousness [Unknown]
  - Paraesthesia [Unknown]
  - Injury associated with device [Unknown]
  - Depression [Unknown]
  - Movement disorder [Unknown]

NARRATIVE: CASE EVENT DATE: 20150526
